FAERS Safety Report 7846463-0 (Version None)
Quarter: 2011Q4

REPORT INFORMATION
  Report Type: 
  Country: None (occurrence: None)
  Receive Date: 20111025
  Receipt Date: 20111025
  Transmission Date: 20120403
  Serious: Yes (Hospitalization)
  Sender: FDA-Public Use
  Company Number: None

PATIENT
  Sex: Male
  Weight: 77.11 kg

DRUGS (1)
  1. CIPROFLOXACIN [Suspect]
     Indication: INFECTION
     Dosage: ONE PILL A DAY
     Dates: start: 20110718, end: 20110725

REACTIONS (3)
  - TENDON RUPTURE [None]
  - CONDITION AGGRAVATED [None]
  - TENDON DISORDER [None]
